FAERS Safety Report 5354877-6 (Version None)
Quarter: 2007Q2

REPORT INFORMATION
  Report Type: 
  Country: None (occurrence: None)
  Receive Date: 20070611
  Receipt Date: 20070531
  Transmission Date: 20071010
  Serious: Yes (Hospitalization)
  Sender: FDA-Public Use
  Company Number: 2007-00358

PATIENT
  Age: 71 Year
  Sex: Male
  Weight: 83 kg

DRUGS (9)
  1. VELCADE [Suspect]
     Indication: MYELODYSPLASTIC SYNDROME
     Dosage: 1.50 MG/M2, INTRAVENOUS
     Route: 042
     Dates: start: 20061219, end: 20070130
  2. TYLENOL [Concomitant]
  3. CARVEDILOL [Concomitant]
  4. VICODIN [Concomitant]
  5. COLACE (DOCUSATE SODIUM) [Concomitant]
  6. DOXAZOSIN (DOXAZOSIN) [Concomitant]
  7. ESOMEPRAZOLE (ESOMEPRAZOLE) [Concomitant]
  8. NITROGLYCERIN [Concomitant]
  9. HYDROXIDE [Concomitant]

REACTIONS (8)
  - ANAEMIA [None]
  - ATRIAL FIBRILLATION [None]
  - BLOOD CREATININE INCREASED [None]
  - CELLULITIS [None]
  - FEBRILE NEUTROPENIA [None]
  - GROIN ABSCESS [None]
  - GROIN PAIN [None]
  - THROMBOCYTOPENIA [None]
